FAERS Safety Report 10223635 (Version 2)
Quarter: 2018Q1

REPORT INFORMATION
  Report Type: Report from Study
  Country: US (occurrence: US)
  Receive Date: 20140609
  Receipt Date: 20180321
  Transmission Date: 20180508
  Serious: Yes (Other)
  Sender: FDA-Public Use
  Company Number: US-ROCHE-1412969

PATIENT
  Age: 13 Year
  Sex: Male
  Weight: 39 kg

DRUGS (19)
  1. NUTROPIN AQ [Suspect]
     Active Substance: SOMATROPIN
     Indication: HYPOPITUITARISM
     Dosage: INJECT 1.0MG EACH NIGHT AT BEDTIME
     Route: 058
  2. NUTROPIN AQ [Suspect]
     Active Substance: SOMATROPIN
     Route: 058
  3. CLONIDINE. [Suspect]
     Active Substance: CLONIDINE
     Indication: SEIZURE
     Route: 065
  4. CORTEF [Concomitant]
     Active Substance: HYDROCORTISONE
     Indication: PYREXIA
     Route: 048
     Dates: start: 20140515
  5. IBUPROFEN. [Concomitant]
     Active Substance: IBUPROFEN
     Route: 048
  6. MIRALAX [Concomitant]
     Active Substance: POLYETHYLENE GLYCOL 3350
  7. LEVOTHYROXINE SODIUM. [Concomitant]
     Active Substance: LEVOTHYROXINE SODIUM
     Route: 048
     Dates: start: 20140515
  8. GLUCAGON. [Concomitant]
     Active Substance: GLUCAGON
     Indication: HYPOGLYCAEMIA
     Route: 030
  9. ATIVAN [Concomitant]
     Active Substance: LORAZEPAM
     Route: 048
  10. CELEXA [Concomitant]
     Active Substance: CITALOPRAM HYDROBROMIDE
     Route: 048
  11. KEPPRA [Concomitant]
     Active Substance: LEVETIRACETAM
     Route: 048
  12. SOLU-CORTEF [Concomitant]
     Active Substance: HYDROCORTISONE SODIUM SUCCINATE
     Dosage: INJECT 0.75ML OR 75MG INTO THE MUSCLE
     Route: 030
  13. LAMICTAL [Concomitant]
     Active Substance: LAMOTRIGINE
     Route: 048
  14. MIRALAX [Concomitant]
     Active Substance: POLYETHYLENE GLYCOL 3350
     Dosage: DISSOLVE IN WATER BEFORE TAKING
     Route: 048
  15. GLUCAGON. [Concomitant]
     Active Substance: GLUCAGON
     Dosage: INJECT 1MG IM FOR HYPOGLYCEMIA EMERGENCY
     Route: 030
  16. SOLU-CORTEF [Concomitant]
     Active Substance: HYDROCORTISONE SODIUM SUCCINATE
     Dosage: PRN
     Route: 030
     Dates: start: 20140515
  17. CORTEF [Concomitant]
     Active Substance: HYDROCORTISONE
     Indication: DIARRHOEA
  18. TESTOSTERONE CYPIONATE. [Concomitant]
     Active Substance: TESTOSTERONE CYPIONATE
     Route: 065
     Dates: start: 20140515
  19. TESTOSTERONE ENANTHATE. [Concomitant]
     Active Substance: TESTOSTERONE ENANTHATE
     Dosage: INJECT 50MG IM EVERY 4 WEEKS
     Route: 030

REACTIONS (7)
  - Delayed puberty [Unknown]
  - Growth retardation [Unknown]
  - Treatment noncompliance [Unknown]
  - Seizure [Recovering/Resolving]
  - Abnormal weight gain [Unknown]
  - Blood thyroid stimulating hormone decreased [Unknown]
  - Nightmare [Unknown]

NARRATIVE: CASE EVENT DATE: 20140515
